FAERS Safety Report 8238783-5 (Version None)
Quarter: 2012Q1

REPORT INFORMATION
  Report Type: 
  Country: None (occurrence: None)
  Receive Date: 20120327
  Receipt Date: 20120315
  Transmission Date: 20120608
  Serious: Yes (Hospitalization, Other)
  Sender: FDA-Public Use
  Company Number: US-ELI_LILLY_AND_COMPANY-US201108000684

PATIENT
  Age: 72 Year
  Sex: Female

DRUGS (13)
  1. FORTEO [Suspect]
     Dosage: 20 UG, QD
     Route: 065
     Dates: end: 20120301
  2. ANALGESICS [Concomitant]
  3. PREDNISONE TAB [Concomitant]
  4. DIAVAN [Concomitant]
     Indication: MYOCARDIAL INFARCTION
  5. VICODIN [Concomitant]
  6. NEXIUM [Concomitant]
  7. SYNTHROID [Concomitant]
  8. INSULIN [Concomitant]
  9. FORTEO [Suspect]
     Dosage: 20 UG, UNK
     Dates: start: 20120315
  10. AZATHIOPRINE [Concomitant]
  11. FORTEO [Suspect]
     Indication: OSTEOPOROSIS
     Dosage: 20 UG, QD
     Route: 065
  12. LIPITOR [Concomitant]
  13. ANALGESICS [Concomitant]
     Indication: PAIN

REACTIONS (18)
  - ABDOMINAL PAIN [None]
  - PRECANCEROUS MUCOSAL LESION [None]
  - PAIN IN EXTREMITY [None]
  - PANCREATITIS [None]
  - PANCREATIC INJURY [None]
  - HAEMORRHAGE [None]
  - VOMITING [None]
  - HAEMOGLOBIN DECREASED [None]
  - NAUSEA [None]
  - ARTHRALGIA [None]
  - DIABETES MELLITUS [None]
  - RHEUMATOID ARTHRITIS [None]
  - WEIGHT DECREASED [None]
  - GALLBLADDER OPERATION [None]
  - PERIARTHRITIS [None]
  - ABDOMINAL DISCOMFORT [None]
  - DIZZINESS [None]
  - FEELING ABNORMAL [None]
